FAERS Safety Report 20716553 (Version 1)
Quarter: 2022Q2

REPORT INFORMATION
  Report Type: Spontaneous
  Country: US (occurrence: US)
  Receive Date: 20220416
  Receipt Date: 20220416
  Transmission Date: 20220721
  Serious: No
  Sender: FDA-Public Use
  Company Number: US-TEVA-2022-US-2019986

PATIENT
  Age: 70 Year
  Sex: Female

DRUGS (1)
  1. PIMECROLIMUS [Suspect]
     Active Substance: PIMECROLIMUS
     Indication: Dermatitis contact
     Dosage: APPLY TO HER NECK AND CHEST AREA AND BEHIND HER EARS
     Route: 065
     Dates: start: 20220223, end: 20220303

REACTIONS (2)
  - Application site pruritus [Recovered/Resolved]
  - Application site rash [Recovered/Resolved]

NARRATIVE: CASE EVENT DATE: 20220225
